FAERS Safety Report 4484472-2 (Version None)
Quarter: 2004Q3

REPORT INFORMATION
  Report Type: 
  Country: None (occurrence: None)
  Receive Date: 20040921
  Receipt Date: 20040129
  Transmission Date: 20050211
  Serious: Yes (Disabling)
  Sender: FDA-Public Use
  Company Number: 163-20785-04010374

PATIENT
  Age: 74 Year
  Sex: Female

DRUGS (1)
  1. THALOMID [Suspect]
     Indication: MULTIPLE MYELOMA
     Dosage: 100 MG, AT BEDTIME, ORAL
     Route: 048
     Dates: start: 20020901, end: 20030712

REACTIONS (2)
  - CONFUSIONAL STATE [None]
  - FATIGUE [None]
